FAERS Safety Report 5708086-9 (Version None)
Quarter: 2008Q2

REPORT INFORMATION
  Report Type: 
  Country: None (occurrence: None)
  Receive Date: 20080417
  Receipt Date: 20080410
  Transmission Date: 20081010
  Serious: Yes (Hospitalization)
  Sender: FDA-Public Use
  Company Number: IT-BAYER-200816422GPV

PATIENT
  Age: 79 Year
  Sex: Female

DRUGS (4)
  1. ASPIRIN [Suspect]
     Indication: ANTICOAGULANT THERAPY
     Dosage: TOTAL DAILY DOSE: 100 MG  UNIT DOSE: 100 MG
     Route: 048
     Dates: start: 19990101, end: 20080406
  2. DICLOREUM (DICLOFENAC) [Suspect]
     Indication: MYALGIA
     Dosage: TOTAL DAILY DOSE: 180 MG
     Route: 062
     Dates: start: 20071215, end: 20080405
  3. ENAPREN (ENALAPRIL) [Concomitant]
     Indication: HYPERTENSION
     Dosage: TOTAL DAILY DOSE: 20 MG  UNIT DOSE: 20 MG
     Route: 048
     Dates: start: 20071101, end: 20080401
  4. MUSCORIL (THIOCOLCHICOSIDE) [Concomitant]
     Indication: OSTEOARTHRITIS
     Dosage: TOTAL DAILY DOSE: 4 MG  UNIT DOSE: 4 MG
     Route: 030
     Dates: start: 20071110, end: 20080406

REACTIONS (3)
  - DUODENAL ULCER HAEMORRHAGE [None]
  - GASTRITIS EROSIVE [None]
  - MELAENA [None]
